FAERS Safety Report 4778806-9 (Version None)
Quarter: 2005Q3

REPORT INFORMATION
  Report Type: 
  Country: None (occurrence: None)
  Receive Date: 20050923
  Receipt Date: 20050912
  Transmission Date: 20060218
  Serious: Yes (Hospitalization)
  Sender: FDA-Public Use
  Company Number: A044-002-005765

PATIENT
  Age: 75 Year
  Sex: Male

DRUGS (5)
  1. ARICEPT [Suspect]
     Indication: DEMENTIA ALZHEIMER'S TYPE
     Dosage: 5 MG, 1 IN 1 D, ORAL
     Route: 048
  2. DILTIAZEM HYDROCHLORIDE [Concomitant]
  3. ASPIRIN [Concomitant]
  4. DISGREN (TRIFLUSAL) [Concomitant]
  5. AMARYL [Concomitant]

REACTIONS (1)
  - VOLVULUS OF BOWEL [None]
